FAERS Safety Report 13431384 (Version 3)
Quarter: 2018Q3

REPORT INFORMATION
  Report Type: Spontaneous
  Country: AU (occurrence: AU)
  Receive Date: 20170412
  Receipt Date: 20180731
  Transmission Date: 20181010
  Serious: Yes (Other)
  Sender: FDA-Public Use
  Company Number: AU-PFIZER INC-2017152310

PATIENT
  Age: 46 Year
  Sex: Male

DRUGS (4)
  1. FLUOROURACIL. [Concomitant]
     Active Substance: FLUOROURACIL
     Indication: METASTATIC GASTRIC CANCER
     Dosage: OVER 46 H D1
     Route: 041
  2. PREDNISONE. [Concomitant]
     Active Substance: PREDNISONE
     Indication: MICROANGIOPATHIC HAEMOLYTIC ANAEMIA
     Dosage: 100 MG DAILY
  3. FOLINIC ACID [Concomitant]
     Active Substance: LEUCOVORIN
     Indication: METASTATIC GASTRIC CANCER
     Dosage: D1
  4. OXALIPLATIN. [Suspect]
     Active Substance: OXALIPLATIN
     Indication: METASTATIC GASTRIC CANCER
     Dosage: D1 Q2WEEKLY, 11 CYCLES (85 MG/M^2 D1 Q2WEEKLY)

REACTIONS (2)
  - Neuropathy peripheral [Unknown]
  - Tetany [Unknown]
